FAERS Safety Report 7821279-X (Version None)
Quarter: 2011Q4

REPORT INFORMATION
  Report Type: 
  Country: None (occurrence: None)
  Receive Date: 20111018
  Receipt Date: 20110329
  Transmission Date: 20120403
  Serious: No
  Sender: FDA-Public Use
  Company Number: US-ASTRAZENECA-2009SE14535

PATIENT
  Age: 76 Year
  Sex: Male

DRUGS (7)
  1. SYMBICORT [Suspect]
     Dosage: ONE PUFF BID
     Route: 055
     Dates: start: 20080201
  2. SYMBICORT [Suspect]
     Indication: COUGH
     Dosage: PRN
     Route: 055
  3. SYMBICORT [Suspect]
     Dosage: 2 PUFFS BID 160/4.5 MCG
     Route: 055
  4. SYMBICORT [Suspect]
     Indication: ASTHMA
     Dosage: PRN
     Route: 055
  5. SYMBICORT [Suspect]
     Dosage: 2 PUFFS BID 160/4.5 MCG
     Route: 055
  6. PREVACID [Concomitant]
  7. SYMBICORT [Suspect]
     Dosage: ONE PUFF BID
     Route: 055
     Dates: start: 20080201

REACTIONS (4)
  - DRUG DOSE OMISSION [None]
  - ASTHMA [None]
  - NASOPHARYNGITIS [None]
  - WHEEZING [None]
